FAERS Safety Report 17124934 (Version 3)
Quarter: 2020Q1

REPORT INFORMATION
  Report Type: Spontaneous
  Country: DE (occurrence: DE)
  Receive Date: 20191206
  Receipt Date: 20200312
  Transmission Date: 20200409
  Serious: Yes (Life-Threatening, Hospitalization)
  Sender: FDA-Public Use
  Company Number: DE-JNJFOC-20191206375

PATIENT
  Age: 69 Year
  Sex: Male

DRUGS (8)
  1. COTRIMOXAZOL [Concomitant]
     Active Substance: SULFAMETHOXAZOLE\TRIMETHOPRIM
     Dosage: DAILY DOSE: 960 MG MILLGRAM(S) EVERY 3 WEEKS
     Route: 048
  2. NOVORAPID [Concomitant]
     Active Substance: INSULIN ASPART
     Route: 058
  3. STELARA [Suspect]
     Active Substance: USTEKINUMAB
     Indication: PSORIASIS
     Route: 042
  4. BLINCYTO [Interacting]
     Active Substance: BLINATUMOMAB
     Indication: PHILADELPHIA CHROMOSOME POSITIVE
     Route: 042
     Dates: start: 20190905, end: 20190907
  5. ALLOPURINOL. [Concomitant]
     Active Substance: ALLOPURINOL
     Route: 048
  6. LEVEMIR [Concomitant]
     Active Substance: INSULIN DETEMIR
     Route: 058
  7. ACICLOVIR [Concomitant]
     Active Substance: ACYCLOVIR
     Dosage: DAILY DOSE: 1200 MG MILLGRAM(S) EVERY DAYS
     Route: 048
  8. PANTOPRAZOL [Concomitant]
     Active Substance: PANTOPRAZOLE SODIUM
     Route: 048

REACTIONS (10)
  - Drug interaction [Unknown]
  - Sinus bradycardia [Unknown]
  - Confusional state [Unknown]
  - Dyspnoea [Unknown]
  - Cytokine release syndrome [Recovered/Resolved]
  - Rash [Unknown]
  - Incorrect route of product administration [Unknown]
  - Hypotension [Unknown]
  - Breast pain [Unknown]
  - Off label use [Unknown]

NARRATIVE: CASE EVENT DATE: 20190907
